FAERS Safety Report 8983892 (Version 1)
Quarter: 2012Q4

REPORT INFORMATION
  Report Type: 
  Country: GB (occurrence: GB)
  Receive Date: 20121224
  Receipt Date: 20121224
  Transmission Date: 20130627
  Serious: Yes (Hospitalization)
  Sender: FDA-Public Use
  Company Number: GB-ROCHE-1173246

PATIENT
  Age: 19 Year
  Sex: Male
  Weight: 63 kg

DRUGS (2)
  1. AVASTIN [Suspect]
     Indication: ACOUSTIC NEUROMA
     Route: 042
     Dates: start: 20120417, end: 20120814
  2. AVASTIN [Suspect]
     Indication: NEUROFIBROMATOSIS

REACTIONS (2)
  - Otitis media [Unknown]
  - Convulsion [Recovered/Resolved]
